FAERS Safety Report 14566625 (Version 1)
Quarter: 2018Q1

REPORT INFORMATION
  Report Type: Spontaneous
  Country: US (occurrence: US)
  Receive Date: 20180222
  Receipt Date: 20180222
  Transmission Date: 20180509
  Serious: No
  Sender: FDA-Public Use
  Company Number: None

PATIENT
  Age: 50 Year
  Sex: Female

DRUGS (3)
  1. ENBREL [Suspect]
     Active Substance: ETANERCEPT
  2. GABAPENTIN. [Concomitant]
     Active Substance: GABAPENTIN
  3. ZORVOLEX [Concomitant]
     Active Substance: DICLOFENAC

REACTIONS (6)
  - White blood cell disorder [None]
  - Epstein-Barr virus infection [None]
  - Mean platelet volume decreased [None]
  - Neutrophil count decreased [None]
  - Pain in extremity [None]
  - Fatigue [None]

NARRATIVE: CASE EVENT DATE: 20170601
